FAERS Safety Report 5410678-1 (Version None)
Quarter: 2007Q3

REPORT INFORMATION
  Report Type: 
  Country: None (occurrence: None)
  Receive Date: 20070810
  Receipt Date: 20070628
  Transmission Date: 20080115
  Serious: No
  Sender: FDA-Public Use
  Company Number: A0652990A

PATIENT
  Sex: Female

DRUGS (3)
  1. PAXIL [Suspect]
     Indication: DRUG USE FOR UNKNOWN INDICATION
     Route: 048
  2. PAROXETINE HYDROCHLORIDE [Suspect]
     Indication: DRUG USE FOR UNKNOWN INDICATION
     Route: 048
     Dates: start: 20070101, end: 20070101
  3. PAXIL CR [Suspect]
     Indication: DRUG USE FOR UNKNOWN INDICATION
     Route: 048
     Dates: end: 20070101

REACTIONS (8)
  - ADVERSE EVENT [None]
  - DRUG INEFFECTIVE [None]
  - FEELING ABNORMAL [None]
  - HEAD DISCOMFORT [None]
  - MALAISE [None]
  - PAIN [None]
  - SERUM SEROTONIN DECREASED [None]
  - THERAPEUTIC RESPONSE UNEXPECTED [None]
